FAERS Safety Report 15739210 (Version 2)
Quarter: 2019Q4

REPORT INFORMATION
  Report Type: Report from Study
  Country: ZA (occurrence: ZA)
  Receive Date: 20181219
  Receipt Date: 20191211
  Transmission Date: 20200122
  Serious: Yes (Hospitalization)
  Sender: FDA-Public Use
  Company Number: PHHY2018ZA186867

PATIENT
  Age: 13 Year
  Sex: Male

DRUGS (1)
  1. TUVIGIN [Suspect]
     Active Substance: FINGOLIMOD HYDROCHLORIDE
     Indication: RELAPSING-REMITTING MULTIPLE SCLEROSIS
     Dosage: 0.5 MG, QD
     Route: 065
     Dates: start: 20180212

REACTIONS (8)
  - Lymphocyte count decreased [Unknown]
  - Fatigue [Unknown]
  - Neutrophil count decreased [Unknown]
  - Bradycardia [Unknown]
  - White blood cell count decreased [Unknown]
  - Globulins decreased [Unknown]
  - Blood creatinine increased [Unknown]
  - Blood pressure fluctuation [Unknown]

NARRATIVE: CASE EVENT DATE: 20181212
